FAERS Safety Report 23960730 (Version 1)
Quarter: 2024Q2

REPORT INFORMATION
  Report Type: Spontaneous
  Country: BF (occurrence: BF)
  Receive Date: 20240611
  Receipt Date: 20240611
  Transmission Date: 20240716
  Serious: Yes (Death, Other)
  Sender: FDA-Public Use
  Company Number: BF-BRISTOL-MYERS SQUIBB COMPANY-2024-088866

PATIENT
  Age: 37 Year
  Sex: Male

DRUGS (1)
  1. SPRYCEL [Suspect]
     Active Substance: DASATINIB
     Indication: Chronic myeloid leukaemia
     Dosage: (2 X 50MG TABLETS)

REACTIONS (2)
  - Bone marrow failure [Fatal]
  - Malignant neoplasm progression [Fatal]
